FAERS Safety Report 22211091 (Version 3)
Quarter: 2023Q2

REPORT INFORMATION
  Report Type: Report from Study
  Country: US (occurrence: US)
  Receive Date: 20230414
  Receipt Date: 20230526
  Transmission Date: 20230721
  Serious: No
  Sender: FDA-Public Use
  Company Number: US-002147023-NVSC2023US085487

PATIENT
  Sex: Male

DRUGS (2)
  1. COSENTYX [Suspect]
     Active Substance: SECUKINUMAB
     Indication: Psoriatic arthropathy
     Dosage: UNK (PT HAS COMPLETED HIS 5TH LOADING DOSE AND IS A FEW WEEKS FROM HIS 1 MONTHLY DOSE)
     Route: 065
  2. COSENTYX [Suspect]
     Active Substance: SECUKINUMAB
     Indication: Psoriasis
     Dosage: 300 MG
     Route: 065

REACTIONS (6)
  - Arthritis [Unknown]
  - Condition aggravated [Unknown]
  - Arthralgia [Unknown]
  - Swelling [Unknown]
  - Rash macular [Unknown]
  - Drug ineffective [Unknown]
